FAERS Safety Report 8345369-0 (Version None)
Quarter: 2012Q2

REPORT INFORMATION
  Report Type: 
  Country: None (occurrence: None)
  Receive Date: 20120504
  Receipt Date: 20120425
  Transmission Date: 20120825
  Serious: Yes (Other)
  Sender: FDA-Public Use
  Company Number: 2012SP016941

PATIENT
  Age: 57 Year
  Sex: Female

DRUGS (3)
  1. PEGASYS [Suspect]
     Indication: HEPATITIS C
     Dosage: 180 MCG; QW; SC
     Route: 058
     Dates: start: 20120214
  2. RIBAVIRIN [Suspect]
     Indication: HEPATITIS C
     Dosage: 600 MG; BID; PO
     Route: 048
     Dates: start: 20120214
  3. TELAPREVIR [Suspect]
     Indication: HEPATITIS C
     Dosage: 175 MG;Q8H; PO
     Route: 048
     Dates: start: 20120214, end: 20120313

REACTIONS (8)
  - FLATULENCE [None]
  - ABDOMINAL DISCOMFORT [None]
  - SYNCOPE [None]
  - BURNING SENSATION [None]
  - ANORECTAL DISCOMFORT [None]
  - LOSS OF CONSCIOUSNESS [None]
  - FALL [None]
  - HAEMORRHOIDAL HAEMORRHAGE [None]
